FAERS Safety Report 9648317 (Version 1)
Quarter: 2013Q4

REPORT INFORMATION
  Report Type: Report from Study
  Country: GB (occurrence: GB)
  Receive Date: 20131028
  Receipt Date: 20131028
  Transmission Date: 20140711
  Serious: Yes (Death)
  Sender: FDA-Public Use
  Company Number: GB-ROCHE-1294870

PATIENT
  Sex: Female

DRUGS (1)
  1. RITUXIMAB [Suspect]
     Indication: RHEUMATOID ARTHRITIS
     Dosage: LAST DOSE PRIOR TO SERIOUS ADVERSE EVENT: 25 AUG 2009
     Route: 065
     Dates: start: 20080901

REACTIONS (4)
  - Cerebrovascular accident [Fatal]
  - Atrial fibrillation [Fatal]
  - Peripheral vascular disorder [Fatal]
  - Bronchopneumonia [Fatal]
